FAERS Safety Report 8220429-3 (Version None)
Quarter: 2012Q1

REPORT INFORMATION
  Report Type: 
  Country: None (occurrence: None)
  Receive Date: 20120316
  Receipt Date: 20120305
  Transmission Date: 20120608
  Serious: Yes (Hospitalization)
  Sender: FDA-Public Use
  Company Number: TPA2011A07938

PATIENT
  Age: 61 Year
  Sex: Male
  Weight: 81.6475 kg

DRUGS (1)
  1. ULORIC [Suspect]
     Indication: GOUT
     Dosage: 40 MG, PER ORAL
     Route: 048
     Dates: start: 20110823, end: 20110902

REACTIONS (4)
  - CORONARY ARTERY DISEASE [None]
  - CHEST PAIN [None]
  - CORONARY ARTERY OCCLUSION [None]
  - DYSPEPSIA [None]
